FAERS Safety Report 23804030 (Version 2)
Quarter: 2024Q2

REPORT INFORMATION
  Report Type: Report from Study
  Country: EG (occurrence: None)
  Receive Date: 20240501
  Receipt Date: 20240603
  Transmission Date: 20240716
  Serious: Yes (Other)
  Sender: FDA-Public Use
  Company Number: 2024A010958

PATIENT
  Sex: Female

DRUGS (5)
  1. IMFINZI [Suspect]
     Active Substance: DURVALUMAB
     Indication: Cholangiocarcinoma
     Route: 041
     Dates: start: 20231129
  2. CISPLATIN [Concomitant]
     Active Substance: CISPLATIN
  3. CATAFLAM [Concomitant]
     Active Substance: DICLOFENAC POTASSIUM
  4. PANADOL [Concomitant]
     Active Substance: ACETAMINOPHEN
  5. SOLPADEINE [Concomitant]

REACTIONS (3)
  - Immunodeficiency [Unknown]
  - Anaemia [Unknown]
  - Product use issue [Unknown]
